FAERS Safety Report 14493187 (Version 1)
Quarter: 2018Q1

REPORT INFORMATION
  Report Type: Report from Study
  Country: CA (occurrence: CA)
  Receive Date: 20180206
  Receipt Date: 20180206
  Transmission Date: 20180509
  Serious: Yes (Other)
  Sender: FDA-Public Use
  Company Number: CA-JNJFOC-20180203051

PATIENT
  Age: 16 Year
  Sex: Male
  Weight: 67.7 kg

DRUGS (1)
  1. REMICADE [Suspect]
     Active Substance: INFLIXIMAB
     Indication: CROHN^S DISEASE
     Route: 042

REACTIONS (2)
  - Staphylococcal infection [Recovering/Resolving]
  - Streptococcal infection [Recovering/Resolving]

NARRATIVE: CASE EVENT DATE: 20171211
